FAERS Safety Report 9017683 (Version 2)
Quarter: 2013Q1

REPORT INFORMATION
  Report Type: Spontaneous
  Country: AU (occurrence: AU)
  Receive Date: 20130118
  Receipt Date: 20130310
  Transmission Date: 20140127
  Serious: Yes (Other)
  Sender: FDA-Public Use
  Company Number: AU-009507513-1301AUS002004

PATIENT
  Age: 22 Year
  Sex: Female

DRUGS (1)
  1. IMPLANON NXT [Suspect]
     Dosage: UNK
     Dates: start: 201212

REACTIONS (2)
  - Abortion spontaneous [Unknown]
  - Maternal exposure during pregnancy [Unknown]
